FAERS Safety Report 10590065 (Version 1)
Quarter: 2014Q4

REPORT INFORMATION
  Report Type: Spontaneous
  Country: None (occurrence: None)
  Receive Date: 20141117
  Receipt Date: 20141117
  Transmission Date: 20150529
  Serious: Yes (Disabling)
  Sender: FDA-Public Use
  Company Number: None

PATIENT
  Age: 39 Year
  Sex: Male

DRUGS (1)
  1. LEVITRA [Suspect]
     Active Substance: VARDENAFIL HYDROCHLORIDE TRIHYDRATE
     Dosage: 1/10MG, AT BEDTIME, TAKEN BY MOUTH
     Route: 048
     Dates: start: 20141113

REACTIONS (1)
  - Myalgia [None]

NARRATIVE: CASE EVENT DATE: 20141113
